FAERS Safety Report 14321286 (Version 1)
Quarter: 2017Q4

REPORT INFORMATION
  Report Type: Spontaneous
  Country: GB (occurrence: GB)
  Receive Date: 20171223
  Receipt Date: 20171223
  Transmission Date: 20180321
  Serious: Yes (Death)
  Sender: FDA-Public Use
  Company Number: PHHY2017GB190461

PATIENT
  Age: 57 Year
  Sex: Female

DRUGS (4)
  1. METHOTREXATE. [Suspect]
     Active Substance: METHOTREXATE
     Indication: MYCOSIS FUNGOIDES
     Route: 065
  2. BEXAROTENE. [Suspect]
     Active Substance: BEXAROTENE
     Indication: MYCOSIS FUNGOIDES
     Route: 065
  3. CHLORAMBUCIL [Suspect]
     Active Substance: CHLORAMBUCIL
     Indication: MYCOSIS FUNGOIDES
     Route: 065
  4. PREDNISOLONE. [Suspect]
     Active Substance: PREDNISOLONE
     Indication: MYCOSIS FUNGOIDES
     Route: 065

REACTIONS (4)
  - Therapeutic response decreased [Unknown]
  - Diffuse large B-cell lymphoma [Fatal]
  - Neoplasm skin [Fatal]
  - Second primary malignancy [Fatal]
